FAERS Safety Report 4541757-9 (Version None)
Quarter: 2004Q4

REPORT INFORMATION
  Report Type: 
  Country: None (occurrence: None)
  Receive Date: 20041230
  Receipt Date: 20041008
  Transmission Date: 20050328
  Serious: Yes (Hospitalization)
  Sender: FDA-Public Use
  Company Number: 200414001JP

PATIENT
  Age: 28 Year
  Sex: Female
  Weight: 49 kg

DRUGS (15)
  1. ARAVA [Suspect]
     Indication: RHEUMATOID ARTHRITIS
     Route: 048
     Dates: start: 20031208, end: 20040526
  2. PREDONINE [Suspect]
     Indication: RHEUMATOID ARTHRITIS
     Route: 048
     Dates: start: 20040329
  3. RIMATIL [Concomitant]
     Indication: RHEUMATOID ARTHRITIS
     Route: 048
     Dates: end: 20031207
  4. FAMOTIDINE [Concomitant]
     Indication: GASTRITIS
     Route: 048
  5. FAMOTIDINE [Concomitant]
     Indication: PROPHYLAXIS
     Route: 048
  6. LOXONIN [Concomitant]
     Indication: RHEUMATOID ARTHRITIS
     Route: 048
     Dates: end: 20031110
  7. SELBEX [Concomitant]
     Indication: GASTROINTESTINAL MUCOSAL DISORDER
     Route: 048
     Dates: end: 20031110
  8. SELBEX [Concomitant]
     Indication: PROPHYLAXIS
     Route: 048
     Dates: end: 20031110
  9. LORCAM [Concomitant]
     Indication: RHEUMATOID ARTHRITIS
     Route: 048
     Dates: start: 20031111, end: 20031211
  10. MUCOSTA [Concomitant]
     Indication: GASTROINTESTINAL MUCOSAL DISORDER
     Route: 048
     Dates: start: 20031111
  11. MUCOSTA [Concomitant]
     Indication: PROPHYLAXIS
     Route: 048
     Dates: start: 20031111
  12. DEPAS [Concomitant]
     Indication: MUSCLE DISORDER
     Route: 048
     Dates: start: 20031114
  13. MAGNESIUM OXIDE [Concomitant]
     Indication: CONSTIPATION
     Route: 048
  14. INTEBAN [Concomitant]
     Indication: RHEUMATOID ARTHRITIS
     Route: 048
  15. LENDORMIN [Concomitant]
     Indication: INSOMNIA
     Route: 048

REACTIONS (7)
  - ANXIETY [None]
  - DELUSION [None]
  - HALLUCINATION [None]
  - MENTAL DISORDER [None]
  - PSYCHIATRIC SYMPTOM [None]
  - URINARY OCCULT BLOOD POSITIVE [None]
  - URINE KETONE BODY PRESENT [None]
